FAERS Safety Report 7986681-4 (Version None)
Quarter: 2011Q4

REPORT INFORMATION
  Report Type: 
  Country: None (occurrence: None)
  Receive Date: 20111216
  Receipt Date: 20110809
  Transmission Date: 20120403
  Serious: No
  Sender: FDA-Public Use
  Company Number: US-BRISTOL-MYERS SQUIBB COMPANY-15957525

PATIENT
  Age: 16 Year
  Sex: Male

DRUGS (4)
  1. ABILIFY [Suspect]
     Indication: HALLUCINATION, AUDITORY
  2. ABILIFY [Suspect]
     Indication: DEPRESSION
  3. ABILIFY [Suspect]
     Indication: PSYCHOTIC DISORDER
  4. CELEXA [Concomitant]

REACTIONS (2)
  - DYSTONIA [None]
  - MUSCLE TWITCHING [None]
